FAERS Safety Report 7593974-1 (Version None)
Quarter: 2011Q3

REPORT INFORMATION
  Report Type: 
  Country: None (occurrence: None)
  Receive Date: 20110706
  Receipt Date: 20110629
  Transmission Date: 20111222
  Serious: Yes (Death, Other)
  Sender: FDA-Public Use
  Company Number: DE-SANOFI-AVENTIS-2011SA041893

PATIENT
  Age: 73 Year
  Sex: Female

DRUGS (3)
  1. CETUXIMAB [Suspect]
     Indication: LIP AND/OR ORAL CAVITY CANCER
     Route: 041
     Dates: start: 20091112, end: 20091112
  2. DOCETAXEL [Suspect]
     Indication: LIP AND/OR ORAL CAVITY CANCER
     Route: 041
     Dates: start: 20091112, end: 20091112
  3. CISPLATIN [Suspect]
     Indication: LIP AND/OR ORAL CAVITY CANCER
     Route: 041
     Dates: start: 20091112, end: 20091112

REACTIONS (5)
  - DUODENAL ULCER [None]
  - CONDITION AGGRAVATED [None]
  - SUBILEUS [None]
  - CHRONIC OBSTRUCTIVE PULMONARY DISEASE [None]
  - PAIN [None]
